FAERS Safety Report 23983697 (Version 1)
Quarter: 2024Q2

REPORT INFORMATION
  Report Type: Spontaneous
  Country: US (occurrence: US)
  Receive Date: 20240618
  Receipt Date: 20240618
  Transmission Date: 20240715
  Serious: No
  Sender: FDA-Public Use
  Company Number: US-AMGEN-USASP2024118460

PATIENT
  Age: 46 Year
  Sex: Female

DRUGS (2)
  1. EPOGEN [Suspect]
     Active Substance: ERYTHROPOIETIN
     Indication: Anaemia
     Dosage: 10,000 UNIT/ML, Q2WK
     Route: 065
     Dates: start: 20240509
  2. EPOGEN [Suspect]
     Active Substance: ERYTHROPOIETIN
     Indication: Chronic kidney disease

REACTIONS (2)
  - Product storage error [Unknown]
  - Intercepted product administration error [Unknown]

NARRATIVE: CASE EVENT DATE: 20240610
